FAERS Safety Report 7210451-8 (Version None)
Quarter: 2011Q1

REPORT INFORMATION
  Report Type: 
  Country: None (occurrence: None)
  Receive Date: 20110105
  Receipt Date: 20101223
  Transmission Date: 20110831
  Serious: Yes (Hospitalization, Other)
  Sender: FDA-Public Use
  Company Number: ES-ELI_LILLY_AND_COMPANY-ES201012005698

PATIENT
  Sex: Female
  Weight: 73 kg

DRUGS (13)
  1. IDEOS [Concomitant]
     Indication: OSTEOPOROSIS
     Dosage: UNK, 2/D
     Route: 048
     Dates: end: 20101001
  2. FORTEO [Suspect]
     Indication: OSTEOPOROSIS
     Dosage: 20 UG, DAILY (1/D)
     Route: 058
     Dates: start: 20101018
  3. DIGOXIN [Concomitant]
     Indication: ARRHYTHMIA
     Dosage: 25 MG, DAILY EXCEPT THURSDAYS AND SUNDAYS
  4. CLAVERSAL [Concomitant]
     Indication: COLITIS ULCERATIVE
     Dosage: 500 MG, 2/D
     Route: 048
  5. IDEOS [Concomitant]
     Dosage: UNK, DAILY (1/D)
     Route: 048
     Dates: start: 20101201
  6. CARDIL                             /00489702/ [Concomitant]
     Indication: HYPERCHOLESTEROLAEMIA
     Dosage: 20 MG, DAILY (1/D)
     Route: 048
  7. DACORTIN [Concomitant]
     Dosage: 5 MG, 2/D
  8. UROTROL [Concomitant]
     Indication: URINARY INCONTINENCE
     Dosage: 4 MG, UNK
     Route: 048
  9. IMUREL [Concomitant]
     Indication: COLITIS ULCERATIVE
     Dosage: UNK, 2/D
     Route: 048
  10. ADIRO [Concomitant]
     Indication: ARRHYTHMIA
     Dosage: 100 MG, DAILY (1/D)
     Route: 048
  11. OMEPRAZOLE [Concomitant]
     Indication: PROPHYLAXIS
     Dosage: 20 MG, DAILY (1/D)
     Route: 048
  12. CLIPPER [Concomitant]
     Indication: COLITIS ULCERATIVE
     Route: 048
  13. FOSFOCINA [Concomitant]
     Indication: URINARY INCONTINENCE
     Dosage: 500 MG, DAILY (1/D)
     Route: 048

REACTIONS (6)
  - FATIGUE [None]
  - DECREASED APPETITE [None]
  - ARTHRALGIA [None]
  - PYREXIA [None]
  - GAIT DISTURBANCE [None]
  - INTESTINAL POLYP [None]
